FAERS Safety Report 24167394 (Version 1)
Quarter: 2024Q3

REPORT INFORMATION
  Report Type: Spontaneous
  Country: FR (occurrence: FR)
  Receive Date: 20240802
  Receipt Date: 20240802
  Transmission Date: 20241016
  Serious: Yes (Other)
  Sender: MYLAN
  Company Number: FR-MYLANLABS-2024M1071665

PATIENT
  Age: 77 Year
  Sex: Male

DRUGS (1)
  1. AMIODARONE [Suspect]
     Active Substance: AMIODARONE
     Dosage: 100 MILLIGRAM, AM ( 100 MG IN THE MORNING)
     Route: 048

REACTIONS (9)
  - Rash [Unknown]
  - Paraesthesia [Unknown]
  - Off label use [Unknown]
  - Pain [Unknown]
  - Electric shock sensation [Unknown]
  - Dry mouth [Unknown]
  - Dysphagia [Unknown]
  - Ageusia [Unknown]
  - Aphasia [Unknown]
